FAERS Safety Report 5734549-6 (Version None)
Quarter: 2008Q2

REPORT INFORMATION
  Report Type: 
  Country: None (occurrence: None)
  Receive Date: 20080512
  Receipt Date: 20080505
  Transmission Date: 20081010
  Serious: Yes (Other)
  Sender: FDA-Public Use
  Company Number: PHBS2008NL04472

PATIENT
  Age: 52 Year
  Sex: Female

DRUGS (7)
  1. CYCLOPHOSPHAMIDE [Suspect]
     Indication: BREAST CANCER METASTATIC
     Dosage: 1000 MG/M2/DAY
     Route: 065
  2. THIOTEPA [Suspect]
     Indication: BREAST CANCER METASTATIC
     Dosage: 80 MG/M2/DAY
     Route: 065
  3. CARBOPLATIN [Concomitant]
     Indication: BREAST CANCER METASTATIC
  4. DEXAMETHASONE [Concomitant]
  5. GRANISETRON HCL [Concomitant]
  6. VIGABATRIN [Concomitant]
     Indication: EPILEPSY
     Dosage: 500 MG, BID
     Route: 048
  7. CARBAMAZEPINE [Suspect]
     Indication: EPILEPSY
     Dosage: 200 MG, BID
     Route: 048

REACTIONS (1)
  - DRUG INTERACTION [None]
